FAERS Safety Report 22959189 (Version 3)
Quarter: 2024Q1

REPORT INFORMATION
  Report Type: Report from Study
  Country: NL (occurrence: NL)
  Receive Date: 20230920
  Receipt Date: 20240305
  Transmission Date: 20240409
  Serious: Yes (Other)
  Sender: FDA-Public Use
  Company Number: NL-ABBVIE-5410782

PATIENT
  Sex: Female

DRUGS (17)
  1. ADALIMUMAB [Suspect]
     Active Substance: ADALIMUMAB\ISOPROPYL ALCOHOL
     Indication: Terminal ileitis
     Route: 058
     Dates: start: 2009, end: 2013
  2. UPADACITINIB [Suspect]
     Active Substance: UPADACITINIB
     Indication: Crohn^s disease
     Dosage: MAINTENANCE DOSE,?FORM STRENGTH: 45 MILLIGRAM
     Route: 048
  3. UPADACITINIB [Suspect]
     Active Substance: UPADACITINIB
     Indication: Crohn^s disease
     Dosage: MAINTENANCE DOSE,?FORM STRENGTH: 30 MILLIGRAM
     Route: 048
  4. UPADACITINIB [Suspect]
     Active Substance: UPADACITINIB
     Indication: Crohn^s disease
     Dosage: START DOSE,?FORM STRENGTH: 15 MILLIGRAM
     Route: 048
  5. METHOTREXATE [Suspect]
     Active Substance: METHOTREXATE
     Indication: Product used for unknown indication
     Route: 048
     Dates: start: 2013
  6. METHOTREXATE [Suspect]
     Active Substance: METHOTREXATE
     Indication: Product used for unknown indication
     Route: 048
     Dates: start: 2020
  7. PREDNISONE [Concomitant]
     Active Substance: PREDNISONE
     Indication: Product used for unknown indication
     Dates: start: 201911
  8. PREDNISONE [Concomitant]
     Active Substance: PREDNISONE
     Indication: Product used for unknown indication
     Dosage: AT A LOW DOSE
     Dates: start: 2005
  9. FILGOTINIB [Concomitant]
     Active Substance: FILGOTINIB
     Indication: Product used for unknown indication
     Dates: start: 2020, end: 2023
  10. Union thioguanine [Concomitant]
     Indication: Product used for unknown indication
  11. ENTYVIO [Concomitant]
     Active Substance: VEDOLIZUMAB
     Indication: Product used for unknown indication
     Dates: start: 2016
  12. NALTREXONE [Concomitant]
     Active Substance: NALTREXONE
     Indication: Product used for unknown indication
     Dosage: LOW DOSE
     Dates: start: 2019, end: 201911
  13. STELARA [Concomitant]
     Active Substance: USTEKINUMAB
     Indication: Product used for unknown indication
     Dates: start: 201703
  14. BUDESONIDE [Concomitant]
     Active Substance: BUDESONIDE
     Indication: Product used for unknown indication
     Dates: start: 2019
  15. AZATHIOPRINE [Concomitant]
     Active Substance: AZATHIOPRINE
     Indication: Terminal ileitis
     Dates: start: 2010
  16. AZATHIOPRINE [Concomitant]
     Active Substance: AZATHIOPRINE
     Indication: Terminal ileitis
     Dates: start: 2005
  17. MERCAPTOPURINE [Concomitant]
     Active Substance: MERCAPTOPURINE
     Indication: Product used for unknown indication

REACTIONS (9)
  - Ileal stenosis [Not Recovered/Not Resolved]
  - Intestinal anastomosis complication [Unknown]
  - Alopecia [Not Recovered/Not Resolved]
  - Terminal ileitis [Unknown]
  - Multiple sclerosis [Unknown]
  - Small intestinal perforation [Recovered/Resolved]
  - Ileectomy [Not Recovered/Not Resolved]
  - Gastrointestinal erosion [Not Recovered/Not Resolved]
  - Drug ineffective [Not Recovered/Not Resolved]

NARRATIVE: CASE EVENT DATE: 20090101
